FAERS Safety Report 5799429-9 (Version None)
Quarter: 2008Q3

REPORT INFORMATION
  Report Type: 
  Country: None (occurrence: None)
  Receive Date: 20080702
  Receipt Date: 20080702
  Transmission Date: 20090109
  Serious: Yes (Other)
  Sender: FDA-Public Use
  Company Number: None

PATIENT
  Sex: Male
  Weight: 92.0802 kg

DRUGS (6)
  1. TOPROL-XL [Suspect]
     Indication: CORONARY ARTERY DISEASE
     Dosage: 50MG ONCE PO OD
     Route: 048
     Dates: start: 20050101, end: 20060101
  2. TOPROL-XL [Suspect]
     Indication: DIABETES MELLITUS
     Dosage: 50MG ONCE PO OD
     Route: 048
     Dates: start: 20050101, end: 20060101
  3. TOPROL-XL [Suspect]
     Indication: HYPERTENSION
     Dosage: 50MG ONCE PO OD
     Route: 048
     Dates: start: 20050101, end: 20060101
  4. CARVEDILOL [Suspect]
     Indication: CORONARY ARTERY DISEASE
     Dosage: 25MG PO OD
     Route: 048
     Dates: start: 20070101, end: 20080101
  5. CARVEDILOL [Suspect]
     Indication: DIABETES MELLITUS
     Dosage: 25MG PO OD
     Route: 048
     Dates: start: 20070101, end: 20080101
  6. CARVEDILOL [Suspect]
     Indication: HYPERTENSION
     Dosage: 25MG PO OD
     Route: 048
     Dates: start: 20070101, end: 20080101

REACTIONS (1)
  - BLOOD PRESSURE SYSTOLIC INCREASED [None]
